FAERS Safety Report 12991607 (Version 1)
Quarter: 2016Q4

REPORT INFORMATION
  Report Type: Spontaneous
  Country: IT (occurrence: IT)
  Receive Date: 20161201
  Receipt Date: 20161201
  Transmission Date: 20170207
  Serious: Yes (Other)
  Sender: FDA-Public Use
  Company Number: IT-BAUSCH-BL-2016-028808

PATIENT
  Age: 55 Year
  Sex: Male

DRUGS (5)
  1. OXALIPLATIN. [Suspect]
     Active Substance: OXALIPLATIN
     Indication: COLON CANCER METASTATIC
     Dosage: EVERY CYCLE
     Route: 042
     Dates: start: 20160526, end: 20160526
  2. VECTIBIX [Concomitant]
     Active Substance: PANITUMUMAB
     Indication: PRODUCT USED FOR UNKNOWN INDICATION
     Dates: start: 20160526, end: 20161027
  3. FLUOROURACIL. [Suspect]
     Active Substance: FLUOROURACIL
     Dosage: EVERY CYCLE
     Route: 042
     Dates: start: 20161027, end: 20161027
  4. OXALIPLATIN. [Suspect]
     Active Substance: OXALIPLATIN
     Dosage: EVERY CYCLE
     Route: 042
     Dates: start: 20161027, end: 20161027
  5. FLUOROURACIL. [Suspect]
     Active Substance: FLUOROURACIL
     Indication: COLON CANCER METASTATIC
     Dosage: EVERY CYCLE
     Route: 040
     Dates: start: 20160526, end: 20160526

REACTIONS (4)
  - Paraesthesia [Recovering/Resolving]
  - Stomatitis [Recovering/Resolving]
  - Asthenia [Recovering/Resolving]
  - Palmar-plantar erythrodysaesthesia syndrome [Recovering/Resolving]

NARRATIVE: CASE EVENT DATE: 20161028
